FAERS Safety Report 7033212-1 (Version None)
Quarter: 2010Q4

REPORT INFORMATION
  Report Type: 
  Country: None (occurrence: None)
  Receive Date: 20101007
  Receipt Date: 20100824
  Transmission Date: 20110411
  Serious: No
  Sender: FDA-Public Use
  Company Number: US-BAYER-201031894NA

PATIENT
  Age: 64 Year
  Sex: Female

DRUGS (1)
  1. ULTRAVIST (PHARMACY BULK) [Suspect]
     Indication: COMPUTERISED TOMOGRAM ABDOMEN
     Dosage: AS USED: 150 MG
     Route: 042
     Dates: start: 20100823, end: 20100823

REACTIONS (2)
  - FLUSHING [None]
  - PRURITUS GENERALISED [None]
